FAERS Safety Report 25727163 (Version 1)
Quarter: 2025Q3

REPORT INFORMATION
  Report Type: Spontaneous
  Country: US (occurrence: None)
  Receive Date: 20250825
  Receipt Date: 20250825
  Transmission Date: 20251020
  Serious: Yes (Life-Threatening, Hospitalization, Disabling)
  Sender: FDA-CTU
  Company Number: None

PATIENT
  Age: 83 Year
  Sex: Female
  Weight: 79 kg

DRUGS (1)
  1. PEMBROLIZUMAB [Suspect]
     Active Substance: PEMBROLIZUMAB
     Indication: Skin cancer
     Route: 042

REACTIONS (2)
  - Diabetic ketoacidosis [None]
  - Hyperglycaemia [None]

NARRATIVE: CASE EVENT DATE: 20250817
